FAERS Safety Report 5159910-2 (Version None)
Quarter: 2006Q4

REPORT INFORMATION
  Report Type: 
  Country: None (occurrence: None)
  Receive Date: 20061129
  Receipt Date: 20060502
  Transmission Date: 20070319
  Serious: No
  Sender: FDA-Public Use
  Company Number: US-GLAXOSMITHKLINE-A0604085A

PATIENT
  Age: 35 Year
  Sex: Male

DRUGS (6)
  1. WELLBUTRIN XL [Suspect]
     Indication: DEPRESSION
     Dosage: 150MG TWICE PER DAY
     Route: 048
     Dates: start: 20050901, end: 20051101
  2. EFFEXOR [Concomitant]
  3. KLONOPIN [Concomitant]
  4. INDERAL [Concomitant]
  5. ADDERALL 10 [Concomitant]
  6. TRAZODONE HCL [Concomitant]

REACTIONS (2)
  - ANXIETY [None]
  - STOMACH DISCOMFORT [None]
